FAERS Safety Report 7349336-5 (Version None)
Quarter: 2011Q1

REPORT INFORMATION
  Report Type: 
  Country: None (occurrence: None)
  Receive Date: 20110314
  Receipt Date: 20110302
  Transmission Date: 20110831
  Serious: Yes (Other)
  Sender: FDA-Public Use
  Company Number: US-RB-023311-11

PATIENT
  Sex: Female
  Weight: 24 kg

DRUGS (1)
  1. SUBOXONE TAB [Suspect]
     Indication: DRUG DEPENDENCE
     Dosage: DOSAGE INFORMATION UNKNOWN
     Route: 064
     Dates: start: 20060901, end: 20070705

REACTIONS (1)
  - EMOTIONAL DISORDER OF CHILDHOOD [None]
